FAERS Safety Report 4909999-8 (Version None)
Quarter: 2006Q1

REPORT INFORMATION
  Report Type: 
  Country: None (occurrence: None)
  Receive Date: 20060208
  Receipt Date: 20060202
  Transmission Date: 20060701
  Serious: Yes (Life-Threatening)
  Sender: FDA-Public Use
  Company Number: 200609802

PATIENT
  Age: 67 Year
  Sex: Female

DRUGS (3)
  1. STREPTOKINASE (STREPTOKINASE) (UNKNOWN) [Suspect]
     Indication: MYOCARDIAL INFARCTION
     Dosage: 1.5 MIU DAILY IV
     Route: 042
  2. ASPIRIN [Concomitant]
  3. CLOPIDOGREL [Concomitant]

REACTIONS (13)
  - ACTIVATED PARTIAL THROMBOPLASTIN TIME PROLONGED [None]
  - DYSPNOEA [None]
  - ECCHYMOSIS [None]
  - HAEMODIALYSIS [None]
  - HAEMOGLOBIN DECREASED [None]
  - LARYNGEAL OEDEMA [None]
  - MEDIASTINAL HAEMATOMA [None]
  - PHARYNGEAL OEDEMA [None]
  - PHARYNGOLARYNGEAL PAIN [None]
  - PROTHROMBIN TIME RATIO INCREASED [None]
  - RESPIRATORY TRACT HAEMORRHAGE [None]
  - STRIDOR [None]
  - TACHYPNOEA [None]
